FAERS Safety Report 11798022 (Version 2)
Quarter: 2015Q4

REPORT INFORMATION
  Report Type: Spontaneous
  Country: DE (occurrence: DE)
  Receive Date: 20151203
  Receipt Date: 20151228
  Transmission Date: 20160305
  Serious: Yes (Hospitalization)
  Sender: FDA-Public Use
  Company Number: DE-JNJFOC-20151201206

PATIENT
  Age: 33 Year
  Sex: Male

DRUGS (6)
  1. TILIDINE [Concomitant]
     Active Substance: TILIDINE
     Dosage: TILIDINE/NALOXONE- TOTAL DAILY DOSE ^200/16^(UNSPECIFIED UNITS)
     Route: 065
  2. REMICADE [Suspect]
     Active Substance: INFLIXIMAB
     Indication: SARCOIDOSIS
     Dosage: 330 MG/500 ML NACL
     Route: 042
     Dates: start: 201407
  3. IBUPROFEN. [Concomitant]
     Active Substance: IBUPROFEN
     Route: 065
  4. NALOXONE [Concomitant]
     Active Substance: NALOXONE
     Dosage: TILIDINE/NALOXONE- TOTAL DAILY DOSE ^200/16^(UNSPECIFIED UNITS)
     Route: 065
  5. METHOTREXATE [Concomitant]
     Active Substance: METHOTREXATE
     Route: 065
  6. FOLIC ACID. [Concomitant]
     Active Substance: FOLIC ACID
     Route: 065

REACTIONS (4)
  - Immunosuppression [Unknown]
  - Product use issue [Unknown]
  - Off label use [Unknown]
  - Herpes zoster [Recovered/Resolved]

NARRATIVE: CASE EVENT DATE: 201407
